FAERS Safety Report 24855161 (Version 5)
Quarter: 2025Q4

REPORT INFORMATION
  Report Type: Report from Study
  Country: EU (occurrence: EU)
  Receive Date: 20250117
  Receipt Date: 20251107
  Transmission Date: 20260118
  Serious: Yes (Hospitalization, Other)
  Sender: UCB
  Company Number: EU-UCBSA-2024044411

PATIENT
  Age: 71 Year

DRUGS (3)
  1. ROZANOLIXIZUMAB [Suspect]
     Active Substance: ROZANOLIXIZUMAB
     Indication: Myasthenia gravis
     Dosage: 560 MILLIGRAM, WEEKLY (QW)
  2. ROZANOLIXIZUMAB [Suspect]
     Active Substance: ROZANOLIXIZUMAB
     Dosage: UNK, WEEKLY (QW) 2ND CYCLE
  3. ROZANOLIXIZUMAB [Suspect]
     Active Substance: ROZANOLIXIZUMAB
     Dosage: UNK, WEEKLY (QW), 3RD CYCLE

REACTIONS (12)
  - COVID-19 [Recovered/Resolved]
  - Pneumonia [Recovered/Resolved]
  - Myasthenia gravis [Not Recovered/Not Resolved]
  - Headache [Recovering/Resolving]
  - Dizziness [Recovering/Resolving]
  - Blood pressure fluctuation [Unknown]
  - Haemoglobin increased [Unknown]
  - Limb discomfort [Unknown]
  - Smear cervix abnormal [Unknown]
  - Arthralgia [Recovering/Resolving]
  - Aspiration joint [Not Recovered/Not Resolved]
  - Hyperhidrosis [Recovered/Resolved]
